FAERS Safety Report 20490460 (Version 2)
Quarter: 2022Q1

REPORT INFORMATION
  Report Type: Spontaneous
  Country: BE (occurrence: BE)
  Receive Date: 20220218
  Receipt Date: 20220225
  Transmission Date: 20220423
  Serious: Yes (Hospitalization, Other)
  Sender: FDA-Public Use
  Company Number: BE-MLMSERVICE-20220202-3349802-2

PATIENT
  Age: 41 Year
  Sex: Female

DRUGS (4)
  1. METHYLPREDNISOLONE [Suspect]
     Active Substance: METHYLPREDNISOLONE
     Indication: Immunosuppressant drug therapy
     Dosage: 72 MG, 1X/DAY
     Route: 048
  2. METHYLPREDNISOLONE [Suspect]
     Active Substance: METHYLPREDNISOLONE
     Dosage: 4 MG, 1X/DAY
  3. RUXOLITINIB [Suspect]
     Active Substance: RUXOLITINIB
     Indication: Hepatitis
     Dosage: 10 MG
  4. RUXOLITINIB [Suspect]
     Active Substance: RUXOLITINIB
     Indication: Graft versus host disease

REACTIONS (3)
  - Viral corneal ulcer [Recovered/Resolved]
  - Corneal epithelium defect [Recovered/Resolved]
  - Herpes ophthalmic [Recovered/Resolved]
